FAERS Safety Report 6925326-9 (Version None)
Quarter: 2010Q3

REPORT INFORMATION
  Report Type: 
  Country: None (occurrence: None)
  Receive Date: 20100816
  Receipt Date: 20100803
  Transmission Date: 20110219
  Serious: Yes (Other)
  Sender: FDA-Public Use
  Company Number: KR-JNJFOC-20100801662

PATIENT
  Age: 3 Month
  Sex: Male

DRUGS (5)
  1. INFLIXIMAB, RECOMBINANT [Suspect]
     Indication: KAWASAKI'S DISEASE
     Dosage: RECEIVED 1 DOSE OF 5-6.6 MG/KG
     Route: 042
  2. IMMUNE GLOBULIN INTRAVENOUS (HUMAN) [Concomitant]
     Indication: PYREXIA
  3. ASPIRIN [Concomitant]
     Indication: PYREXIA
  4. METHYLPREDNISOLONE [Concomitant]
     Indication: PYREXIA
     Dosage: RECEIVED 3 DOSES
     Route: 042
  5. STEROIDS NOS [Concomitant]
     Route: 048

REACTIONS (2)
  - CHOLECYSTITIS [None]
  - HEPATITIS ACUTE [None]
